FAERS Safety Report 4401328-1 (Version None)
Quarter: 2004Q3

REPORT INFORMATION
  Report Type: 
  Country: None (occurrence: None)
  Receive Date: 20040907
  Receipt Date: 20040311
  Transmission Date: 20050211
  Serious: No
  Sender: FDA-Public Use
  Company Number: US-BRISTOL-MYERS SQUIBB COMPANY-12531604

PATIENT
  Sex: Female

DRUGS (5)
  1. COUMADIN [Suspect]
     Indication: ATRIAL FIBRILLATION
     Route: 048
  2. HYDROCHLOROTHIAZIDE [Concomitant]
  3. POTASSIUM [Concomitant]
  4. VITAMIN C [Concomitant]
     Dosage: ONE IN THE MORNING AND SOMETIMES TAKES AN EXTRA ONE IN THE EVENING
  5. VITAMIN E [Concomitant]

REACTIONS (1)
  - PROTHROMBIN TIME RATIO ABNORMAL [None]
